FAERS Safety Report 7201836-4 (Version None)
Quarter: 2010Q4

REPORT INFORMATION
  Report Type: 
  Country: None (occurrence: None)
  Receive Date: 20101229
  Receipt Date: 20101029
  Transmission Date: 20110411
  Serious: Yes (Hospitalization, Other)
  Sender: FDA-Public Use
  Company Number: US-BAYER-201022314NA

PATIENT
  Sex: Female
  Weight: 84.091 kg

DRUGS (15)
  1. YAZ [Suspect]
     Indication: CONTRACEPTION
     Dosage: UNK UNK, QD
     Route: 048
     Dates: start: 20080401, end: 20080501
  2. YAZ [Suspect]
     Indication: ACNE
  3. CIPROFLOXACIN [Concomitant]
     Dates: start: 20080601
  4. FLAGYL [Concomitant]
     Dates: start: 20080101
  5. ATIVAN [Concomitant]
     Dates: start: 20080201
  6. ATIVAN [Concomitant]
     Dates: start: 20080701
  7. ABILIFY [Concomitant]
     Indication: DEPRESSION
     Dates: start: 20060101, end: 20080101
  8. EFFEXOR [Concomitant]
     Indication: DEPRESSION
     Dates: start: 20060101, end: 20080101
  9. LOVENOX [Concomitant]
     Indication: DEEP VEIN THROMBOSIS
     Dates: start: 20080501, end: 20080702
  10. DEPO-PROVERA [Concomitant]
  11. TRAZODONE [Concomitant]
  12. OXYCONTIN [Concomitant]
     Dosage: 20-40 MG PER DAY
  13. SEROQUEL [Concomitant]
  14. VITAMIN K TAB [Concomitant]
     Route: 048
  15. PROZAC [Concomitant]
     Dosage: 20 MG (DAILY DOSE), , ORAL
     Route: 048

REACTIONS (8)
  - CONTUSION [None]
  - DEEP VEIN THROMBOSIS [None]
  - GROIN PAIN [None]
  - INFLAMMATION [None]
  - OEDEMA PERIPHERAL [None]
  - PULMONARY EMBOLISM [None]
  - TENDERNESS [None]
  - THROMBOSIS [None]
